FAERS Safety Report 5671732-2 (Version None)
Quarter: 2008Q2

REPORT INFORMATION
  Report Type: 
  Country: None (occurrence: None)
  Receive Date: 20080229
  Receipt Date: 20080128
  Transmission Date: 20081010
  Serious: Yes (Other)
  Sender: FDA-Public Use
  Company Number: PHEH2008US00756

PATIENT
  Age: 82 Year
  Sex: Female

DRUGS (3)
  1. EXJADE [Suspect]
     Indication: IRON OVERLOAD
     Dosage: 1500MG, QD, ORAL; 500MG, QD, ORAL; 1000MG, QD, ORAL
     Route: 048
     Dates: start: 20070515, end: 20070608
  2. EXJADE [Suspect]
     Indication: IRON OVERLOAD
     Dosage: 1500MG, QD, ORAL; 500MG, QD, ORAL; 1000MG, QD, ORAL
     Route: 048
     Dates: start: 20070611, end: 20070701
  3. EXJADE [Suspect]
     Indication: IRON OVERLOAD
     Dosage: 1500MG, QD, ORAL; 500MG, QD, ORAL; 1000MG, QD, ORAL
     Route: 048
     Dates: start: 20080102, end: 20080106

REACTIONS (7)
  - ABDOMINAL DISCOMFORT [None]
  - DIARRHOEA [None]
  - FATIGUE [None]
  - FEELING ABNORMAL [None]
  - HEADACHE [None]
  - MALAISE [None]
  - POOR QUALITY SLEEP [None]
